FAERS Safety Report 15108733 (Version 1)
Quarter: 2018Q3

REPORT INFORMATION
  Report Type: Report from Study
  Country: FR (occurrence: FR)
  Receive Date: 20180705
  Receipt Date: 20180705
  Transmission Date: 20181010
  Serious: Yes (Hospitalization)
  Sender: FDA-Public Use
  Company Number: FR-ASTRAZENECA-2018SE67914

PATIENT
  Age: 23197 Day
  Sex: Female
  Weight: 62 kg

DRUGS (2)
  1. MEDI4736 [Suspect]
     Active Substance: DURVALUMAB
     Indication: BREAST CANCER METASTATIC
     Dosage: 1800 MG
     Route: 042
     Dates: start: 20180406, end: 20180507
  2. DAFALGAN CODEINE [Concomitant]
     Active Substance: ACETAMINOPHEN\CODEINE PHOSPHATE
     Route: 065

REACTIONS (1)
  - Metastases to bone [Not Recovered/Not Resolved]

NARRATIVE: CASE EVENT DATE: 20180511
